FAERS Safety Report 22876768 (Version 3)
Quarter: 2023Q4

REPORT INFORMATION
  Report Type: Spontaneous
  Country: US (occurrence: US)
  Receive Date: 20230829
  Receipt Date: 20231011
  Transmission Date: 20240109
  Serious: Yes (Other)
  Sender: FDA-Public Use
  Company Number: US-PFIZER INC-202300284752

PATIENT
  Age: 60 Year
  Sex: Male

DRUGS (2)
  1. XELJANZ [Suspect]
     Active Substance: TOFACITINIB CITRATE
     Indication: Arthritis
     Dosage: BID (60 TABLETS)
     Route: 048
  2. XELJANZ [Suspect]
     Active Substance: TOFACITINIB CITRATE
     Indication: Ankylosing spondylitis
     Dosage: QD (30 TABLETS)
     Route: 048

REACTIONS (6)
  - Neoplasm malignant [Unknown]
  - Ileostomy [Unknown]
  - Rheumatoid arthritis [Unknown]
  - Pain [Unknown]
  - Hypoacusis [Unknown]
  - Off label use [Unknown]
